FAERS Safety Report 17310997 (Version 1)
Quarter: 2020Q1

REPORT INFORMATION
  Report Type: Spontaneous
  Country: US (occurrence: US)
  Receive Date: 20200123
  Receipt Date: 20200123
  Transmission Date: 20200409
  Serious: No
  Sender: FDA-Public Use
  Company Number: US-ROCHE-2272895

PATIENT
  Age: 51 Year
  Sex: Female

DRUGS (4)
  1. ORENCIA [Concomitant]
     Active Substance: ABATACEPT
     Indication: CHRONIC OBSTRUCTIVE PULMONARY DISEASE
  2. KEVZARA [Concomitant]
     Active Substance: SARILUMAB
  3. RITUXAN [Suspect]
     Active Substance: RITUXIMAB
     Indication: PRODUCT USED FOR UNKNOWN INDICATION
     Route: 042
  4. ENBREL [Concomitant]
     Active Substance: ETANERCEPT
     Indication: RASH

REACTIONS (1)
  - Arthralgia [Unknown]
